FAERS Safety Report 9370794 (Version 2)
Quarter: 2013Q3

REPORT INFORMATION
  Report Type: Spontaneous
  Country: US (occurrence: US)
  Receive Date: 20130626
  Receipt Date: 20130919
  Transmission Date: 20140515
  Serious: Yes (Death)
  Sender: FDA-Public Use
  Company Number: US-LUNDBECK-DKLU1091930

PATIENT
  Sex: Female
  Weight: 15 kg

DRUGS (7)
  1. SABRIL (FOR ORAL SOLUTION) [Suspect]
     Indication: INFANTILE SPASMS
     Route: 048
     Dates: start: 20130508
  2. SABRIL (FOR ORAL SOLUTION) [Suspect]
     Indication: GRAND MAL CONVULSION
     Dates: start: 20130605
  3. KEPPRA [Concomitant]
     Indication: PRODUCT USED FOR UNKNOWN INDICATION
  4. KEPPRA [Concomitant]
  5. ANZO [Concomitant]
     Indication: PRODUCT USED FOR UNKNOWN INDICATION
  6. ANZO [Concomitant]
  7. ANZO [Concomitant]

REACTIONS (1)
  - Death [Fatal]
